FAERS Safety Report 15342486 (Version 1)
Quarter: 2018Q3

REPORT INFORMATION
  Report Type: Spontaneous
  Country: US (occurrence: US)
  Receive Date: 20180902
  Receipt Date: 20180902
  Transmission Date: 20181010
  Serious: Yes (Other)
  Sender: FDA-Public Use
  Company Number: US-BAXTER-2018BAX022495

PATIENT
  Sex: Male

DRUGS (10)
  1. IFEX [Suspect]
     Active Substance: IFOSFAMIDE
     Indication: HODGKIN^S DISEASE STAGE IV
     Dosage: 2 CYCLES (CYCLES 1, 2) FROM DAYS 1?3?SALVAGE ICE REGIMEN
     Route: 042
  2. PREDNISONE. [Suspect]
     Active Substance: PREDNISONE
     Indication: HODGKIN^S DISEASE STAGE IV
     Dosage: 40 MG/M2/DAY 4 CYCLES  (CYCLES 1, 3, 5, 7) FROM DAY 1 TO DAY 14?COP REGIMEN
     Route: 048
  3. PROCARBAZINE [Suspect]
     Active Substance: PROCARBAZINE
     Indication: HODGKIN^S DISEASE STAGE IV
     Dosage: 4 CYCLES (CYCLES 2, 4, 6, 8)  FROM DAYS 1 TO DAY 14?COP REGIMEN
     Route: 048
  4. DOXORUBICIN [Suspect]
     Active Substance: DOXORUBICIN
     Indication: HODGKIN^S DISEASE STAGE IV
     Dosage: 4 CYCLES (CYCLES 1, 3, 5, 7) ON DAYS 1 AND DAY 15?COP REGIMEN
     Route: 042
  5. CARBOPLATIN. [Suspect]
     Active Substance: CARBOPLATIN
     Indication: HODGKIN^S DISEASE STAGE IV
     Dosage: 2 CYCLES (CYCLES 1, 2) ON DAY 1?SALVAGE ICE REGIMEN
     Route: 042
  6. CYCLOPHOSPHAMIDE FOR INJECTION, USP [Suspect]
     Active Substance: CYCLOPHOSPHAMIDE
     Indication: HODGKIN^S DISEASE STAGE IV
     Dosage: 4 CYCLES (CYCLES 2, 4, 6, 8) ON DAY1 AND DAY 8?COP REGIMEN
     Route: 042
  7. METHOTREXATE. [Suspect]
     Active Substance: METHOTREXATE
     Indication: HODGKIN^S DISEASE STAGE IV
     Dosage: 4 CYCLES (CYCLES 1, 3, 5, 7) ON DAYS 1 AND DAY 15?COP REGIMEN
     Route: 042
  8. VINCRISTINE [Suspect]
     Active Substance: VINCRISTINE
     Indication: HODGKIN^S DISEASE STAGE IV
     Dosage: 4 CYCLES (CYCLES 2, 4, 6, 8) ON DAYS 1 AND 8 (MAX DOSE 2 MG)?COP REGIMEN
     Route: 042
  9. VINBLASTINE [Suspect]
     Active Substance: VINBLASTINE
     Indication: HODGKIN^S DISEASE STAGE IV
     Dosage: 4 CYCLES (CYCLES 1, 3, 5, 7) ON DAYS 1 AND DAY 15?COP REGIMEN
     Route: 042
  10. ETOPOSIDE. [Suspect]
     Active Substance: ETOPOSIDE
     Indication: HODGKIN^S DISEASE STAGE IV
     Dosage: 2 CYCLES (CYCLES 1, 2) FROM DAYS 1 TO DAY 3?SALVAGE ICE REGIMEN
     Route: 042

REACTIONS (9)
  - Febrile neutropenia [Unknown]
  - Neutropenia [Unknown]
  - Splenic lesion [Unknown]
  - Vomiting [Unknown]
  - Ataxia [Unknown]
  - Cholecystitis [Unknown]
  - Disease recurrence [Unknown]
  - Bone marrow failure [Unknown]
  - Fungal infection [Unknown]
